FAERS Safety Report 8970922 (Version 2)
Quarter: 2013Q1

REPORT INFORMATION
  Report Type: Spontaneous
  Country: US (occurrence: US)
  Receive Date: 20121218
  Receipt Date: 20130109
  Transmission Date: 20140127
  Serious: Yes (Other)
  Sender: FDA-Public Use
  Company Number: US-PFIZER INC-2012315379

PATIENT
  Age: 63 Year
  Sex: Female
  Weight: 68.03 kg

DRUGS (4)
  1. ADVIL [Suspect]
     Indication: ARTHRALGIA
     Dosage: 200 MG THREE TABLETS ONCE A DAY
     Route: 048
  2. ADVIL [Suspect]
     Indication: INFLAMMATION
  3. ADVIL [Suspect]
     Indication: ARTHRALGIA
  4. MONTELUKAST [Suspect]
     Indication: HYPERSENSITIVITY
     Dosage: UNK

REACTIONS (4)
  - Autoimmune thyroiditis [Unknown]
  - Hypersensitivity [Unknown]
  - Pain [Unknown]
  - Drug effect incomplete [Unknown]
